FAERS Safety Report 16138866 (Version 1)
Quarter: 2019Q1

REPORT INFORMATION
  Report Type: Spontaneous
  Country: US (occurrence: US)
  Receive Date: 20190226
  Receipt Date: 20190226
  Transmission Date: 20190418
  Serious: No
  Sender: FDA-Public Use
  Company Number: None

PATIENT
  Age: 60 Year
  Sex: Male
  Weight: 82.55 kg

DRUGS (2)
  1. SUBOXONE [Suspect]
     Active Substance: BUPRENORPHINE HYDROCHLORIDE\NALOXONE HYDROCHLORIDE
     Indication: SUBSTANCE USE DISORDER
     Dates: start: 20190109, end: 20190117
  2. SUBOXONE [Suspect]
     Active Substance: BUPRENORPHINE HYDROCHLORIDE\NALOXONE HYDROCHLORIDE
     Indication: SUBSTANCE USE DISORDER
     Dosage: 8/2 MG 1XDAILY, FILM
     Dates: start: 20190109, end: 20190117

REACTIONS (4)
  - Euphoric mood [None]
  - Personality change [None]
  - Aggression [None]
  - Imprisonment [None]

NARRATIVE: CASE EVENT DATE: 20190101
